FAERS Safety Report 9051069 (Version 1)
Quarter: 2013Q1

REPORT INFORMATION
  Report Type: Spontaneous
  Country: US (occurrence: US)
  Receive Date: 20130206
  Receipt Date: 20130206
  Transmission Date: 20140127
  Serious: No
  Sender: FDA-Public Use
  Company Number: US-009507513-1302USA001365

PATIENT
  Age: 50 None
  Sex: Female

DRUGS (4)
  1. VICTRELIS [Suspect]
     Indication: HEPATITIS C
     Dosage: UNK
     Dates: start: 20130126
  2. RIBAPAK [Suspect]
     Indication: HEPATITIS C
     Dosage: 600 MG, BID
     Dates: start: 20121221
  3. RIBAPAK [Suspect]
     Dosage: 600 MG, QD
     Dates: start: 201301
  4. PEGASYS [Suspect]
     Indication: HEPATITIS C
     Dosage: UNK
     Dates: start: 20121221

REACTIONS (4)
  - Therapy change [Unknown]
  - Chills [Unknown]
  - Dysgeusia [Unknown]
  - Diarrhoea [Unknown]
